FAERS Safety Report 9432554 (Version 2)
Quarter: 2013Q4

REPORT INFORMATION
  Report Type: Report from Study
  Country: BR (occurrence: BR)
  Receive Date: 20130731
  Receipt Date: 20131007
  Transmission Date: 20140711
  Serious: Yes (Life-Threatening, Hospitalization)
  Sender: FDA-Public Use
  Company Number: PHHY2013BR081367

PATIENT
  Sex: Female
  Weight: 75 kg

DRUGS (2)
  1. EXELON PATCH [Suspect]
     Indication: DEMENTIA ALZHEIMER^S TYPE
     Dosage: UNK UKN, UNK (AFTER BATH IN SITES WITHOUT HAIR)
     Route: 062
  2. EXELON PATCH [Suspect]
     Dosage: UNK UKN, UNK (AFTER BATH IN SITES WITHOUT HAIR)
     Route: 062

REACTIONS (4)
  - Coma [Unknown]
  - Unresponsive to stimuli [Unknown]
  - Cerebrovascular accident [Unknown]
  - Malaise [Unknown]
